FAERS Safety Report 6322637-5 (Version None)
Quarter: 2009Q3

REPORT INFORMATION
  Report Type: 
  Country: None (occurrence: None)
  Receive Date: 20090824
  Receipt Date: 20090216
  Transmission Date: 20100115
  Serious: No
  Sender: FDA-Public Use
  Company Number: US-ABBOTT-09P-163-0557834-00

PATIENT
  Sex: Female
  Weight: 81.72 kg

DRUGS (10)
  1. NIASPAN [Suspect]
     Indication: BLOOD CHOLESTEROL INCREASED
     Route: 048
     Dates: start: 20090213
  2. VITAMINS [Concomitant]
     Indication: DRUG USE FOR UNKNOWN INDICATION
  3. BENAZEPRIL HYDROCHLORIDE [Concomitant]
     Indication: HYPERTENSION
  4. AMLODIPINE [Concomitant]
     Indication: HYPERTENSION
  5. TETRACYCLINE [Concomitant]
     Indication: ROSACEA
  6. ULTRAVATE [Concomitant]
     Indication: PSORIASIS
  7. METROGEL [Concomitant]
     Indication: ROSACEA
  8. ALENDRONATE SODIUM [Concomitant]
     Indication: OSTEOPOROSIS
  9. ULTRAM [Concomitant]
     Indication: MIGRAINE
  10. OSCAL WITH VITAMIN D [Concomitant]
     Indication: OSTEOPOROSIS

REACTIONS (3)
  - DYSPEPSIA [None]
  - FLUSHING [None]
  - URTICARIA [None]
